FAERS Safety Report 4353642-6 (Version None)
Quarter: 2004Q2

REPORT INFORMATION
  Report Type: 
  Country: None (occurrence: None)
  Receive Date: 20040430
  Receipt Date: 20040402
  Transmission Date: 20050107
  Serious: Yes (Hospitalization, Other)
  Sender: FDA-Public Use
  Company Number: SUSI-2004-00210

PATIENT
  Age: 29 Year
  Sex: Male

DRUGS (1)
  1. ADDERALL [Suspect]

REACTIONS (8)
  - ABNORMAL BEHAVIOUR [None]
  - AGITATION [None]
  - DRUG DEPENDENCE [None]
  - FACIAL BONES FRACTURE [None]
  - FALL [None]
  - MEDICATION ERROR [None]
  - PSYCHOTIC DISORDER [None]
  - TOOTH INJURY [None]
